FAERS Safety Report 20649681 (Version 1)
Quarter: 2022Q1

REPORT INFORMATION
  Report Type: Spontaneous
  Country: PL (occurrence: PL)
  Receive Date: 20220329
  Receipt Date: 20220329
  Transmission Date: 20220424
  Serious: Yes (Life-Threatening, Other)
  Sender: FDA-Public Use
  Company Number: PL-EMA-DD-20190520-abdul_j-101825

PATIENT
  Age: 23 Year
  Sex: Female

DRUGS (3)
  1. SOTALOL [Suspect]
     Active Substance: SOTALOL
     Indication: Ventricular arrhythmia
     Dosage: UNK
  2. RANOLAZINE [Suspect]
     Active Substance: RANOLAZINE
     Indication: Ventricular arrhythmia
     Dosage: UNK
  3. PROPAFENONE [Suspect]
     Active Substance: PROPAFENONE
     Indication: Ventricular arrhythmia
     Dosage: UNK

REACTIONS (2)
  - Sinus bradycardia [Recovered/Resolved]
  - Drug ineffective [Unknown]
